FAERS Safety Report 21026585 (Version 1)
Quarter: 2022Q2

REPORT INFORMATION
  Report Type: Spontaneous
  Country: RU (occurrence: RU)
  Receive Date: 20220630
  Receipt Date: 20220630
  Transmission Date: 20220721
  Serious: Yes (Life-Threatening, Other)
  Sender: FDA-Public Use
  Company Number: RU-drreddys-SPO/RUS/22/0151639

PATIENT
  Age: 83 Year
  Sex: Male
  Weight: 75 kg

DRUGS (7)
  1. CIPROFLOXACIN HYDROCHLORIDE [Suspect]
     Active Substance: CIPROFLOXACIN HYDROCHLORIDE
     Indication: Leukopenia
     Route: 048
     Dates: start: 20220615, end: 20220615
  2. EMOXYPINE SUCCINATE [Concomitant]
     Active Substance: EMOXYPINE SUCCINATE
     Indication: Cerebral ischaemia
     Route: 041
     Dates: start: 20220606
  3. SODIUM CHLORIDE [Concomitant]
     Active Substance: SODIUM CHLORIDE
     Indication: Cerebral ischaemia
     Route: 041
     Dates: start: 20220606
  4. PIRACETAM [Concomitant]
     Active Substance: PIRACETAM
     Indication: Cerebral ischaemia
     Route: 042
     Dates: start: 20220606
  5. Larigamma [Concomitant]
     Indication: Cerebral ischaemia
     Route: 030
     Dates: start: 20220606
  6. BETAHISTINE [Concomitant]
     Active Substance: BETAHISTINE
     Indication: Cerebral ischaemia
     Dosage: TWO TIMES A DAY (MORNING AND EVENING)
     Dates: start: 20220606
  7. ATORVASTATIN [Concomitant]
     Active Substance: ATORVASTATIN
     Indication: Cerebral ischaemia
     Dosage: (EVENING)
     Route: 048
     Dates: start: 20220606

REACTIONS (1)
  - Laryngospasm [Recovered/Resolved]

NARRATIVE: CASE EVENT DATE: 20220615
